FAERS Safety Report 5974924-8 (Version None)
Quarter: 2008Q4

REPORT INFORMATION
  Report Type: 
  Country: None (occurrence: None)
  Receive Date: 20081202
  Receipt Date: 20081124
  Transmission Date: 20090506
  Serious: Yes (Hospitalization)
  Sender: FDA-Public Use
  Company Number: FR-PFIZER INC-2008100653

PATIENT
  Sex: Male

DRUGS (5)
  1. DOXORUBICIN HYDROCHLORIDE [Suspect]
     Dosage: TEXT:CYCLIC
     Route: 042
     Dates: start: 20070101, end: 20070501
  2. MABTHERA [Suspect]
     Indication: B-CELL LYMPHOMA
     Dosage: TEXT:CYCLIC
     Route: 042
     Dates: start: 20070101, end: 20080801
  3. ENDOXAN [Suspect]
     Dosage: TEXT:CYCLIC
     Route: 042
     Dates: start: 20070101, end: 20070501
  4. ONCOVIN [Suspect]
     Route: 042
     Dates: start: 20070101, end: 20070501
  5. SOLUPRED [Suspect]
     Dosage: TEXT:CYCLIC
     Route: 048
     Dates: start: 20070101, end: 20070501

REACTIONS (2)
  - GRANULOMATOUS LIVER DISEASE [None]
  - SARCOIDOSIS [None]
